FAERS Safety Report 13193147 (Version 1)
Quarter: 2017Q1

REPORT INFORMATION
  Report Type: Spontaneous
  Country: BR (occurrence: BR)
  Receive Date: 20170207
  Receipt Date: 20170207
  Transmission Date: 20170428
  Serious: Yes (Other)
  Sender: FDA-Public Use
  Company Number: BR-PFIZER INC-2017050561

PATIENT
  Sex: Male

DRUGS (1)
  1. ALDAZIDA [Suspect]
     Active Substance: HYDROCHLOROTHIAZIDE\SPIRONOLACTONE

REACTIONS (1)
  - Drug dependence [Not Recovered/Not Resolved]
